FAERS Safety Report 26094573 (Version 3)
Quarter: 2025Q4

REPORT INFORMATION
  Report Type: Spontaneous
  Country: US (occurrence: US)
  Receive Date: 20251126
  Receipt Date: 20251222
  Transmission Date: 20260117
  Serious: Yes (Death, Hospitalization, Other)
  Sender: REGENERON
  Company Number: US-REGENERON PHARMACEUTICALS, INC.-2025-187431

PATIENT
  Sex: Female

DRUGS (2)
  1. EYLEA HD [Suspect]
     Active Substance: AFLIBERCEPT
     Indication: Neovascular age-related macular degeneration
     Dosage: UNK, (PATIENT ON TREATMENT FOR BOTH EYES)LEFT EYE, FORMULATION: HD VIAL
     Route: 031
     Dates: start: 20240829, end: 20250828
  2. EYLEA HD [Suspect]
     Active Substance: AFLIBERCEPT
     Dosage: UNK, RIGHT EYE, FORMULATION: HD VIAL
     Route: 031
     Dates: start: 20240829, end: 20250828

REACTIONS (5)
  - Respiratory failure [Fatal]
  - Respiratory tract infection [Unknown]
  - Vomiting [Unknown]
  - Injection site pain [Unknown]
  - Ocular hyperaemia [Unknown]

NARRATIVE: CASE EVENT DATE: 20250101
